FAERS Safety Report 20906508 (Version 1)
Quarter: 2022Q2

REPORT INFORMATION
  Report Type: Spontaneous
  Country: US (occurrence: None)
  Receive Date: 20220602
  Receipt Date: 20220602
  Transmission Date: 20220721
  Serious: No
  Sender: FDA-Public Use
  Company Number: None

PATIENT
  Sex: Male

DRUGS (11)
  1. HALDOL [Suspect]
     Active Substance: HALOPERIDOL
     Indication: Schizophrenia
     Dosage: OTHER QUANTITY : 3 PILLS;?FREQUENCY : AT BEDTIME;?
     Route: 048
     Dates: start: 2014
  2. BENZTROPINE MESYLATE [Concomitant]
     Active Substance: BENZTROPINE MESYLATE
  3. PRAVASTATIN [Concomitant]
     Active Substance: PRAVASTATIN
  4. AMLODIPINE BESYLATE [Concomitant]
     Active Substance: AMLODIPINE BESYLATE
  5. EMPAGLIFLOZIN [Concomitant]
     Active Substance: EMPAGLIFLOZIN
  6. LISINOPRIL [Concomitant]
     Active Substance: LISINOPRIL
  7. CLONIDINE [Concomitant]
     Active Substance: CLONIDINE
  8. GLIPIZIDE [Concomitant]
     Active Substance: GLIPIZIDE
  9. ALOGLIPTIN [Concomitant]
     Active Substance: ALOGLIPTIN
  10. TAMSULOSIN [Concomitant]
     Active Substance: TAMSULOSIN
  11. METFORMIN [Concomitant]
     Active Substance: METFORMIN HYDROCHLORIDE

REACTIONS (1)
  - Erectile dysfunction [None]
